FAERS Safety Report 10344230 (Version 1)
Quarter: 2014Q3

REPORT INFORMATION
  Report Type: Spontaneous
  Country: US (occurrence: None)
  Receive Date: 20140725
  Receipt Date: 20140725
  Transmission Date: 20150326
  Serious: Yes (Life-Threatening)
  Sender: FDA-Public Use
  Company Number: None

PATIENT
  Age: 6 Year
  Sex: Female
  Weight: 59 kg

DRUGS (2)
  1. KEPPRA [Suspect]
     Active Substance: LEVETIRACETAM
     Indication: EPILEPSY
     Route: 048
     Dates: start: 20000501, end: 20140723
  2. KEPPRA [Suspect]
     Active Substance: LEVETIRACETAM
     Indication: DWARFISM
     Route: 048
     Dates: start: 20000501, end: 20140723

REACTIONS (2)
  - Convulsion [None]
  - Product substitution issue [None]

NARRATIVE: CASE EVENT DATE: 20000430
